FAERS Safety Report 6235066-X (Version None)
Quarter: 2009Q2

REPORT INFORMATION
  Report Type: 
  Country: None (occurrence: None)
  Receive Date: 20090618
  Receipt Date: 20090608
  Transmission Date: 20091009
  Serious: Yes (Hospitalization, Other)
  Sender: FDA-Public Use
  Company Number: PHHY2009BR23073

PATIENT
  Age: 85 Year
  Sex: Female

DRUGS (3)
  1. EXELON [Suspect]
     Dosage: 3 MG, 2 CAPSULE PER DAY
     Route: 048
     Dates: start: 20080601
  2. EXELON [Suspect]
     Dosage: 1.5 MG
     Route: 048
  3. EXELON [Suspect]
     Dosage: 1 DF, QD
     Route: 048
     Dates: start: 20090530

REACTIONS (12)
  - ABDOMINAL PAIN UPPER [None]
  - ANOREXIA [None]
  - ASTHENIA [None]
  - BODY TEMPERATURE DECREASED [None]
  - CHILLS [None]
  - CYST [None]
  - FEELING ABNORMAL [None]
  - HYPERHIDROSIS [None]
  - MALAISE [None]
  - NAUSEA [None]
  - PALLOR [None]
  - PRESYNCOPE [None]
